FAERS Safety Report 9278636 (Version 2)
Quarter: 2013Q2

REPORT INFORMATION
  Report Type: Spontaneous
  Country: US (occurrence: None)
  Receive Date: 20130501
  Receipt Date: 20130529
  Transmission Date: 20140414
  Serious: Yes (Other)
  Sender: FDA-Public Use
  Company Number: JPI-P-031396

PATIENT
  Age: 67 Year
  Sex: Female

DRUGS (1)
  1. XYREM [Suspect]
     Indication: INSOMNIA
     Dosage: (4.5 GM,2 IN 1 D)
     Route: 048
     Dates: start: 20080229

REACTIONS (3)
  - Asthma [None]
  - Rotator cuff repair [None]
  - Bronchospasm [None]
